FAERS Safety Report 5995350-1 (Version None)
Quarter: 2008Q4

REPORT INFORMATION
  Report Type: 
  Country: None (occurrence: None)
  Receive Date: 20081212
  Receipt Date: 20080929
  Transmission Date: 20090506
  Serious: No
  Sender: FDA-Public Use
  Company Number: US-ABBOTT-08P-163-0478710-00

PATIENT
  Sex: Female
  Weight: 54.48 kg

DRUGS (1)
  1. HUMIRA [Suspect]
     Indication: RHEUMATOID ARTHRITIS
     Route: 050
     Dates: start: 20080604

REACTIONS (4)
  - DIARRHOEA [None]
  - DYSPNOEA [None]
  - NASOPHARYNGITIS [None]
  - PRODUCTIVE COUGH [None]
